FAERS Safety Report 11326964 (Version 1)
Quarter: 2015Q3

REPORT INFORMATION
  Report Type: Spontaneous
  Country: FR (occurrence: FR)
  Receive Date: 20150731
  Receipt Date: 20150731
  Transmission Date: 20151125
  Serious: Yes (Hospitalization, Other)
  Sender: FDA-Public Use
  Company Number: FR-GLAXOSMITHKLINE-FR2014GSK018309

PATIENT
  Age: 2 Year
  Sex: Female

DRUGS (7)
  1. SALBUTAMOL SULPHATE [Suspect]
     Active Substance: ALBUTEROL SULFATE
     Indication: ASTHMA
     Dosage: 200 UG, TID
  2. METHYLPREDNISOLONE. [Suspect]
     Active Substance: METHYLPREDNISOLONE
     Indication: ASTHMA
     Dosage: 1 MG/KG, UNK
  3. FLUTICASONE [Suspect]
     Active Substance: FLUTICASONE\FLUTICASONE PROPIONATE
     Indication: ASTHMA
     Dosage: 100 UG, BID
  4. ALBUTEROL. [Suspect]
     Active Substance: ALBUTEROL
  5. MAGNESIUM SULFATE. [Suspect]
     Active Substance: MAGNESIUM SULFATE
     Dosage: 40 UNK, UNK
  6. PREDNISONE. [Suspect]
     Active Substance: PREDNISONE
     Dosage: 2 MG/KG, UNK
  7. OXYGEN. [Suspect]
     Active Substance: OXYGEN
     Indication: ASTHMA

REACTIONS (8)
  - Tachypnoea [Recovered/Resolved]
  - Hyperglycaemia [Recovered/Resolved]
  - Hypoxia [Recovered/Resolved]
  - Lactic acidosis [Recovered/Resolved]
  - Hypocapnia [Recovered/Resolved]
  - Breath sounds abnormal [Recovered/Resolved]
  - Atelectasis [Recovered/Resolved]
  - Cough [Recovered/Resolved]
